FAERS Safety Report 8551717-9 (Version None)
Quarter: 2012Q3

REPORT INFORMATION
  Report Type: 
  Country: None (occurrence: None)
  Receive Date: 20120730
  Receipt Date: 20081121
  Transmission Date: 20120928
  Serious: Yes (Other)
  Sender: FDA-Public Use
  Company Number: CO-PFIZER INC-2012182860

PATIENT
  Age: 62 Year
  Sex: Female

DRUGS (4)
  1. ACETYLSALICYLIC ACID [Concomitant]
     Dosage: 100 MG, 1X/DAY
  2. OLMESARTAN MEDOXOMIL AND HYDROCHLOROTHIZIDE [Suspect]
     Dosage: [OLMESARTAN MEDOXOMIL 20 MG]/ [HYDROCHLOROTHIAZIDE 12.5 MG] EVERY 24 HOURS
  3. LIPITOR [Suspect]
     Dosage: 10 MG, EVERY 24 HOURS
  4. INSULIN ZINC SUSPENSION (CRYSTALLINE) [Concomitant]
     Dosage: 71 IU, 2X/DAY

REACTIONS (1)
  - OBESITY [None]
